FAERS Safety Report 10067145 (Version 1)
Quarter: 2014Q2

REPORT INFORMATION
  Report Type: Spontaneous
  Country: US (occurrence: None)
  Receive Date: 20140408
  Receipt Date: 20140408
  Transmission Date: 20141212
  Serious: Yes (Death)
  Sender: FDA-Public Use
  Company Number: None

PATIENT
  Age: 65 Year
  Sex: Male
  Weight: 117.94 kg

DRUGS (1)
  1. LEVAQUIN [Suspect]
     Indication: STAPHYLOCOCCAL INFECTION
     Dosage: 500 MG EVERY 24 HOURS ONCE DAILY TAKEN BY MOUTH
     Route: 048
     Dates: start: 20131221, end: 20131230

REACTIONS (3)
  - Cerebrovascular accident [None]
  - Intracranial aneurysm [None]
  - Cerebral haemorrhage [None]
